FAERS Safety Report 17743673 (Version 1)
Quarter: 2020Q2

REPORT INFORMATION
  Report Type: Report from Study
  Country: US (occurrence: US)
  Receive Date: 20200505
  Receipt Date: 20200505
  Transmission Date: 20200714
  Serious: Yes (Other)
  Sender: FDA-Public Use
  Company Number: US-ROCHE-2532001

PATIENT
  Sex: Male

DRUGS (10)
  1. FLUCONAZOLE. [Concomitant]
     Active Substance: FLUCONAZOLE
     Route: 048
     Dates: start: 20190618
  2. OXYCODONE [Concomitant]
     Active Substance: OXYCODONE
     Dosage: EVERY FOR HOUR
     Route: 065
  3. TRAMADOL. [Concomitant]
     Active Substance: TRAMADOL
     Dosage: 1 TABLET BY MOUTH EVERY SIX HOURS
     Route: 048
     Dates: start: 20190705
  4. POLYETHYLENE GLYCOL [MACROGOL] [Concomitant]
     Dosage: 1 PACKET BY MOUTH DAILY
     Route: 048
     Dates: start: 20190531
  5. ASPIRIN [ACETYLSALICYLIC ACID] [Concomitant]
     Active Substance: ASPIRIN
     Dosage: DAILY
     Route: 048
  6. VALCYTE [Suspect]
     Active Substance: VALGANCICLOVIR HYDROCHLORIDE
     Indication: LIVER TRANSPLANT
     Route: 048
  7. FUROSEMIDE. [Concomitant]
     Active Substance: FUROSEMIDE
     Route: 048
     Dates: start: 20190614, end: 20190912
  8. SENNOSIDES. [Concomitant]
     Active Substance: SENNOSIDES
     Route: 048
     Dates: start: 20190531
  9. PANTOPRAZOLE [Concomitant]
     Active Substance: PANTOPRAZOLE
     Route: 048
     Dates: start: 20191119
  10. CYCLOSPORINE. [Concomitant]
     Active Substance: CYCLOSPORINE
     Dosage: 3 CAPSULES 2 TIMES A DAY
     Route: 048
     Dates: start: 20191220

REACTIONS (3)
  - Cytomegalovirus infection [Unknown]
  - Off label use [Unknown]
  - Product use in unapproved indication [Unknown]
